FAERS Safety Report 7041640-3 (Version None)
Quarter: 2010Q4

REPORT INFORMATION
  Report Type: 
  Country: None (occurrence: None)
  Receive Date: 20101013
  Receipt Date: 20091210
  Transmission Date: 20110411
  Serious: No
  Sender: FDA-Public Use
  Company Number: US-ASTRAZENECA-2009SE31209

PATIENT
  Age: 55 Year
  Sex: Male
  Weight: 127 kg

DRUGS (1)
  1. SYMBICORT [Suspect]
     Dosage: 640 MCG
     Route: 045
     Dates: start: 20091101

REACTIONS (1)
  - DYSURIA [None]
